FAERS Safety Report 4876716-X (Version None)
Quarter: 2006Q1

REPORT INFORMATION
  Report Type: 
  Country: None (occurrence: None)
  Receive Date: 20060110
  Receipt Date: 20051213
  Transmission Date: 20060701
  Serious: Yes (Disabling)
  Sender: FDA-Public Use
  Company Number: US-MERCK-0512USA02085

PATIENT
  Age: 52 Year
  Sex: Female
  Weight: 91 kg

DRUGS (4)
  1. VIOXX [Suspect]
     Indication: ARTHRITIS
     Route: 048
     Dates: start: 20000101, end: 20020101
  2. VIOXX [Suspect]
     Route: 048
     Dates: start: 20040407
  3. PREMARIN [Concomitant]
     Route: 065
  4. SYNTHROID [Concomitant]
     Route: 065

REACTIONS (4)
  - AORTIC VALVE STENOSIS [None]
  - CARDIAC MURMUR [None]
  - HYPERTENSION [None]
  - JOINT INJURY [None]
